FAERS Safety Report 16190209 (Version 1)
Quarter: 2019Q2

REPORT INFORMATION
  Report Type: Spontaneous
  Country: US (occurrence: US)
  Receive Date: 20190309
  Receipt Date: 20190309
  Transmission Date: 20190711
  Serious: No
  Sender: FDA-Public Use
  Company Number: None

PATIENT
  Age: 62 Year

DRUGS (1)
  1. SPRYCEL [Suspect]
     Active Substance: DASATINIB
     Route: 048
     Dates: start: 201810

REACTIONS (7)
  - Haemoglobin decreased [None]
  - Constipation [None]
  - Drug interaction [None]
  - Gastrooesophageal reflux disease [None]
  - Transfusion [None]
  - Oedema peripheral [None]
  - Gastrointestinal haemorrhage [None]

NARRATIVE: CASE EVENT DATE: 20190309
